FAERS Safety Report 10768363 (Version 6)
Quarter: 2018Q1

REPORT INFORMATION
  Report Type: Report from Study
  Country: TW (occurrence: TW)
  Receive Date: 20150206
  Receipt Date: 20180319
  Transmission Date: 20180508
  Serious: Yes (Hospitalization)
  Sender: FDA-Public Use
  Company Number: TW-ROCHE-1528277

PATIENT
  Age: 62 Year
  Sex: Female
  Weight: 51 kg

DRUGS (25)
  1. PERTUZUMAB. [Suspect]
     Active Substance: PERTUZUMAB
     Indication: HER-2 POSITIVE BREAST CANCER
     Dosage: LOADING DOSE
     Route: 042
     Dates: start: 20140825, end: 20140825
  2. AMBROXOL HCL [Concomitant]
     Active Substance: AMBROXOL HYDROCHLORIDE
     Indication: UPPER RESPIRATORY TRACT INFECTION
     Route: 065
     Dates: start: 20150116, end: 20150119
  3. TRASTUZUMAB EMTANSINE [Suspect]
     Active Substance: ADO-TRASTUZUMAB EMTANSINE
     Indication: HER-2 POSITIVE BREAST CANCER
     Dosage: MOST RECENT DOSE PRIOR TO EVENT ON 29/DEC/2014
     Route: 042
     Dates: start: 20140825
  4. CHLORPHENIRAMIN [Concomitant]
     Active Substance: CHLORPHENIRAMINE MALEATE
     Dosage: INDICATION: BOLLD TRANSFUSION
     Route: 065
     Dates: start: 20150103, end: 20150103
  5. ACETAMINOPHEN. [Concomitant]
     Active Substance: ACETAMINOPHEN
     Indication: PYREXIA
     Route: 065
     Dates: start: 20150103, end: 20150103
  6. RIBOFLAVIN [Concomitant]
     Active Substance: RIBOFLAVIN
     Indication: EPISTAXIS
     Route: 065
     Dates: start: 20150110, end: 20150116
  7. BUTYLSCOPOLAMINE [Concomitant]
     Active Substance: BUTYLSCOPOLAMINE
     Dosage: INDICATION: GASTRIC COMDORTABLE
     Route: 065
     Dates: start: 20150116, end: 20150119
  8. EPIRUBICIN [Suspect]
     Active Substance: EPIRUBICIN
     Indication: HER-2 POSITIVE BREAST CANCER
     Route: 042
     Dates: start: 20140526
  9. TRANSAMIN [Concomitant]
     Active Substance: TRANEXAMIC ACID
     Dosage: INDICATION: EPIUAXIS
     Route: 065
     Dates: start: 20150110, end: 20150116
  10. BENTYLINE [Concomitant]
     Dosage: INDICATION: GASTRIC COMFORTABLE
     Route: 065
     Dates: start: 20150110, end: 20150116
  11. BROWN MIXTURE (ANTIMONY POTASSIUM TARTRATE/LICORICE/OPIUM) [Concomitant]
     Indication: UPPER RESPIRATORY TRACT INFECTION
     Route: 065
     Dates: start: 20150115, end: 20150116
  12. IBUPROFEN. [Concomitant]
     Active Substance: IBUPROFEN
     Indication: UPPER RESPIRATORY TRACT INFECTION
     Route: 065
     Dates: start: 20150116, end: 20150119
  13. OXETHAZINE [Concomitant]
     Dosage: INDICATION: GASTRIC COMDORTABLE.
     Route: 065
     Dates: start: 20150116, end: 20150119
  14. MEFENAMIC ACID. [Concomitant]
     Active Substance: MEFENAMIC ACID
     Indication: UPPER RESPIRATORY TRACT INFECTION
     Route: 065
     Dates: start: 20150116, end: 20150119
  15. MYCOMB [Concomitant]
     Indication: RADIATION SKIN INJURY
     Route: 065
     Dates: start: 20141229, end: 20150113
  16. LORAZEPAM. [Concomitant]
     Active Substance: LORAZEPAM
     Indication: INSOMNIA
     Route: 065
     Dates: start: 20150205
  17. PERTUZUMAB. [Suspect]
     Active Substance: PERTUZUMAB
     Dosage: MAINTAINANCE DOSE?LAST DOSE PRIOR TO EVENT ON 29/DEC/2014
     Route: 042
     Dates: start: 20140916
  18. CYCLOPHOSPHAMIDE. [Suspect]
     Active Substance: CYCLOPHOSPHAMIDE
     Indication: HER-2 POSITIVE BREAST CANCER
     Route: 065
     Dates: start: 20140526
  19. CHLORPHENIRAMIN [Concomitant]
     Active Substance: CHLORPHENIRAMINE MALEATE
     Indication: HYPERSENSITIVITY
     Route: 065
     Dates: start: 20140526
  20. DEXAMETHASONE. [Concomitant]
     Active Substance: DEXAMETHASONE
     Indication: HYPERSENSITIVITY
     Route: 065
     Dates: start: 20140526
  21. DESLORATADINE. [Concomitant]
     Active Substance: DESLORATADINE
     Indication: UPPER RESPIRATORY TRACT INFECTION
     Route: 065
     Dates: start: 20150116, end: 20150119
  22. FOLIC ACID. [Concomitant]
     Active Substance: FOLIC ACID
     Dosage: INDICATION: CHEMOTHERAPY CYTOTOXIC EVENT
     Route: 065
     Dates: start: 20140526
  23. CEPHALEXIN. [Concomitant]
     Active Substance: CEPHALEXIN
     Indication: UPPER RESPIRATORY TRACT INFECTION
     Route: 065
     Dates: start: 20150116, end: 20150119
  24. DEXAMETHASONE. [Concomitant]
     Active Substance: DEXAMETHASONE
     Indication: VOMITING
  25. RIBOFLAVIN [Concomitant]
     Active Substance: RIBOFLAVIN
     Indication: GINGIVAL BLEEDING

REACTIONS (1)
  - Pneumonia [Recovered/Resolved]

NARRATIVE: CASE EVENT DATE: 20150124
